FAERS Safety Report 7882849-6 (Version None)
Quarter: 2011Q4

REPORT INFORMATION
  Report Type: 
  Country: None (occurrence: None)
  Receive Date: 20111101
  Receipt Date: 20110621
  Transmission Date: 20120403
  Serious: Yes (Other)
  Sender: FDA-Public Use
  Company Number: US-AMGEN-USASP2011024276

PATIENT
  Age: 68 Year

DRUGS (1)
  1. ENBREL [Suspect]
     Indication: RHEUMATOID ARTHRITIS
     Dosage: 50 MG, WEEKLY (AS REPORTED 1INJ/WK (50MG)
     Dates: start: 20110315, end: 20110425

REACTIONS (1)
  - HERPES ZOSTER [None]
